FAERS Safety Report 4414045-9 (Version None)
Quarter: 2004Q3

REPORT INFORMATION
  Report Type: 
  Country: None (occurrence: None)
  Receive Date: 20040803
  Receipt Date: 20040722
  Transmission Date: 20050211
  Serious: Yes (Other)
  Sender: FDA-Public Use
  Company Number: GB-GLAXOSMITHKLINE-B0340418A

PATIENT
  Age: 37 Year
  Sex: Female

DRUGS (2)
  1. ZOFRAN [Suspect]
     Indication: POST PROCEDURAL NAUSEA
     Dosage: 4MG SINGLE DOSE
     Route: 042
     Dates: start: 20040623, end: 20040623
  2. NO CONCURRENT MEDICATION [Concomitant]

REACTIONS (4)
  - BLINDNESS TRANSIENT [None]
  - FEELING ABNORMAL [None]
  - SENSORY DISTURBANCE [None]
  - VISION BLURRED [None]
